FAERS Safety Report 7592518-8 (Version None)
Quarter: 2011Q3

REPORT INFORMATION
  Report Type: 
  Country: None (occurrence: None)
  Receive Date: 20110706
  Receipt Date: 20110623
  Transmission Date: 20111222
  Serious: Yes (Hospitalization)
  Sender: FDA-Public Use
  Company Number: US-ELI_LILLY_AND_COMPANY-US201106007933

PATIENT
  Age: 62 Year
  Sex: Male

DRUGS (6)
  1. ZYPREXA [Suspect]
     Indication: HUNTINGTON'S DISEASE
     Dosage: 5 MG, QD
     Dates: start: 20100118
  2. LORAZEPAM [Concomitant]
  3. DIVALPROEX SODIUM [Concomitant]
  4. VITAMIN TAB [Concomitant]
  5. ZYPREXA [Suspect]
     Dosage: 15 MG, QD
  6. CLONAZEPAM [Concomitant]

REACTIONS (3)
  - HUNTINGTON'S DISEASE [None]
  - OFF LABEL USE [None]
  - ABNORMAL BEHAVIOUR [None]
